FAERS Safety Report 7563890-X (Version None)
Quarter: 2011Q2

REPORT INFORMATION
  Report Type: 
  Country: None (occurrence: None)
  Receive Date: 20110622
  Receipt Date: 20110613
  Transmission Date: 20111010
  Serious: Yes (Hospitalization)
  Sender: FDA-Public Use
  Company Number: FR-AMGEN-FRASP2011029024

PATIENT
  Age: 64 Year
  Sex: Male

DRUGS (10)
  1. AVASTIN [Suspect]
     Dosage: UNK
     Route: 042
     Dates: start: 20100907
  2. CLASTOBAN [Concomitant]
  3. NEXIUM [Concomitant]
  4. ALIMTA [Suspect]
     Dosage: 1000 MG, QD
     Route: 042
     Dates: start: 20100907, end: 20101110
  5. PREDNISONE [Concomitant]
  6. DICETEL [Concomitant]
  7. CISPLATIN [Suspect]
     Dosage: 150 MG, QD
     Route: 042
     Dates: start: 20100907, end: 20101110
  8. NEULASTA [Suspect]
     Indication: CHEMOTHERAPY
     Dosage: UNK
     Route: 042
     Dates: start: 20100907, end: 20101113
  9. PLAVIX [Concomitant]
  10. CRESTOR [Concomitant]

REACTIONS (1)
  - PNEUMOTHORAX [None]
